FAERS Safety Report 7663485-3 (Version None)
Quarter: 2011Q3

REPORT INFORMATION
  Report Type: 
  Country: None (occurrence: None)
  Receive Date: 20110805
  Receipt Date: 20100915
  Transmission Date: 20111222
  Serious: No
  Sender: FDA-Public Use
  Company Number: US-ABBOTT-10P-163-0670936-00

PATIENT
  Sex: Male
  Weight: 81.266 kg

DRUGS (2)
  1. SIMVASTATIN [Suspect]
     Indication: PRODUCT USED FOR UNKNOWN INDICATION
  2. NIASPAN [Suspect]
     Indication: ARTERIOSCLEROSIS
     Dates: start: 20091101

REACTIONS (8)
  - DYSPNOEA [None]
  - FATIGUE [None]
  - NASAL CONGESTION [None]
  - PARAESTHESIA [None]
  - ASTHENIA [None]
  - MUSCULOSKELETAL PAIN [None]
  - BURNING SENSATION [None]
  - PAIN IN EXTREMITY [None]
